FAERS Safety Report 11052049 (Version 1)
Quarter: 2015Q2

REPORT INFORMATION
  Report Type: Spontaneous
  Country: US (occurrence: None)
  Receive Date: 20150420
  Receipt Date: 20150420
  Transmission Date: 20150821
  Serious: Yes (Hospitalization)
  Sender: FDA-Public Use
  Company Number: None

PATIENT
  Age: 39 Year
  Sex: Male

DRUGS (1)
  1. IBUPROFEN. [Suspect]
     Active Substance: IBUPROFEN
     Indication: PAIN
     Dates: start: 20141104, end: 20141125

REACTIONS (5)
  - Hypertension [None]
  - Agitation [None]
  - Gastric haemorrhage [None]
  - Withdrawal syndrome [None]
  - Tremor [None]

NARRATIVE: CASE EVENT DATE: 20141125
